FAERS Safety Report 12284791 (Version 1)
Quarter: 2016Q2

REPORT INFORMATION
  Report Type: Spontaneous
  Country: US (occurrence: US)
  Receive Date: 20160420
  Receipt Date: 20160420
  Transmission Date: 20160815
  Serious: No
  Sender: FDA-Public Use
  Company Number: US-TEVA-618508USA

PATIENT
  Sex: Male

DRUGS (1)
  1. ZOLPIDEM [Suspect]
     Active Substance: ZOLPIDEM\ZOLPIDEM TARTRATE
     Route: 065

REACTIONS (10)
  - Hypoaesthesia [Unknown]
  - Initial insomnia [Unknown]
  - Hypersomnia [Unknown]
  - Asthenia [Unknown]
  - Wrong technique in product usage process [Unknown]
  - Intentional product misuse [Unknown]
  - Somnolence [Unknown]
  - Feeling abnormal [Unknown]
  - Hangover [Unknown]
  - Fatigue [Unknown]

NARRATIVE: CASE EVENT DATE: 2015
